FAERS Safety Report 17814529 (Version 1)
Quarter: 2020Q2

REPORT INFORMATION
  Report Type: Spontaneous
  Country: FR (occurrence: FR)
  Receive Date: 20200522
  Receipt Date: 20200522
  Transmission Date: 20200714
  Serious: Yes (Other)
  Sender: FDA-Public Use
  Company Number: FR-AUROBINDO-AUR-APL-2020-025601

PATIENT
  Age: 82 Year
  Sex: Male

DRUGS (2)
  1. AMOXICILLINE/ACIDE CLAVULANIQ. SANDOZ [Suspect]
     Active Substance: AMOXICILLIN\CLAVULANIC ACID
     Indication: PLEURISY
     Dosage: 3 DOSAGE FORM, ONCE A DAY
     Route: 048
     Dates: start: 20200404, end: 20200407
  2. AMOXICILLIN ARROW  DISPERSIBLE TABLET 1G [Suspect]
     Active Substance: AMOXICILLIN
     Indication: PLEURISY
     Dosage: 3 GRAM, ONCE A DAY
     Route: 048
     Dates: start: 20200404, end: 20200407

REACTIONS (4)
  - Jaundice [Recovered/Resolved]
  - Hepatocellular injury [Recovered/Resolved]
  - Cholestasis [Recovered/Resolved]
  - Condition aggravated [Recovered/Resolved]

NARRATIVE: CASE EVENT DATE: 20200407
